FAERS Safety Report 6791965-1 (Version None)
Quarter: 2010Q2

REPORT INFORMATION
  Report Type: 
  Country: None (occurrence: None)
  Receive Date: 20100624
  Receipt Date: 20080716
  Transmission Date: 20101027
  Serious: No
  Sender: FDA-Public Use
  Company Number: US-PFIZER INC-2008060268

PATIENT
  Sex: Female

DRUGS (5)
  1. XALATAN [Suspect]
     Indication: INTRAOCULAR PRESSURE INCREASED
     Dates: start: 20080401, end: 20080714
  2. PRILOSEC [Concomitant]
  3. CORTISONE [Concomitant]
  4. HYDROCODONE [Concomitant]
  5. ANTIHYPERTENSIVES [Concomitant]

REACTIONS (7)
  - DIZZINESS [None]
  - EYE BURNS [None]
  - EYE DISORDER [None]
  - HEADACHE [None]
  - NAUSEA [None]
  - OCULAR HYPERAEMIA [None]
  - VISION BLURRED [None]
